FAERS Safety Report 6498730-3 (Version None)
Quarter: 2009Q4

REPORT INFORMATION
  Report Type: 
  Country: None (occurrence: None)
  Receive Date: 20091127
  Receipt Date: 20090805
  Transmission Date: 20100525
  Serious: Yes (Hospitalization)
  Sender: FDA-Public Use
  Company Number: 290210

PATIENT
  Age: 11 Year
  Sex: Male

DRUGS (2)
  1. NOVOLOG FLEXPEN (INSULIN ASPART) SOLUTION FOR INJECTION, 1000/ML [Suspect]
     Indication: TYPE 1 DIABETES MELLITUS
     Dosage: 6 LU, TID AC MEALS, SUBCUTANEOUS
     Route: 058
  2. ADDERALL 10 [Concomitant]

REACTIONS (3)
  - BLOOD GLUCOSE DECREASED [None]
  - BLOOD GLUCOSE INCREASED [None]
  - DRUG INEFFECTIVE [None]
